FAERS Safety Report 4768441-0 (Version None)
Quarter: 2005Q3

REPORT INFORMATION
  Report Type: 
  Country: None (occurrence: None)
  Receive Date: 20050914
  Receipt Date: 20050819
  Transmission Date: 20060218
  Serious: Yes (Hospitalization)
  Sender: FDA-Public Use
  Company Number: 200517421GDDC

PATIENT
  Age: 9 Year
  Sex: Male

DRUGS (1)
  1. MINIRIN [Suspect]
     Indication: ENURESIS
     Route: 045
     Dates: start: 20040101, end: 20050707

REACTIONS (3)
  - CEREBROVASCULAR ACCIDENT [None]
  - DNA ANTIBODY POSITIVE [None]
  - TRANSIENT ISCHAEMIC ATTACK [None]
